FAERS Safety Report 23290406 (Version 2)
Quarter: 2024Q1

REPORT INFORMATION
  Report Type: Spontaneous
  Country: EG (occurrence: EG)
  Receive Date: 20231213
  Receipt Date: 20240102
  Transmission Date: 20240410
  Serious: Yes (Other)
  Sender: FDA-Public Use
  Company Number: EG-NOVOPROD-1149778

PATIENT
  Age: 55 Year
  Sex: Female
  Weight: 90 kg

DRUGS (6)
  1. NOVORAPID [Suspect]
     Active Substance: INSULIN ASPART
     Indication: Type 2 diabetes mellitus
     Dosage: UNK (1 YEAR BEFORE THE DEATH DATE, TILL THE DEATH DATE)
     Route: 058
  2. NOVORAPID [Suspect]
     Active Substance: INSULIN ASPART
     Dosage: UNK (DOSE INCREASED)
     Route: 058
  3. DINITRA [Concomitant]
     Indication: Hypertension
     Dosage: 1 TAB DAILY
     Route: 060
  4. CABOTIN [Concomitant]
     Indication: Hypertension
     Dosage: 25 MG
     Route: 048
  5. BISOPROLOL FUMARATE [Concomitant]
     Active Substance: BISOPROLOL FUMARATE
     Indication: Hypertension
     Dosage: 2.5 MG
     Route: 048
  6. ATORVASTATIN CALCIUM [Concomitant]
     Active Substance: ATORVASTATIN CALCIUM
     Indication: Blood cholesterol
     Dosage: 1 TAB BEFORE LUNCH
     Route: 048

REACTIONS (6)
  - Diabetic coma [Recovered/Resolved]
  - Lethargy [Not Recovered/Not Resolved]
  - Renal disorder [Not Recovered/Not Resolved]
  - Blood glucose increased [Unknown]
  - Overdose [Unknown]
  - Drug ineffective [Unknown]
